FAERS Safety Report 9671843 (Version 1)
Quarter: 2013Q4

REPORT INFORMATION
  Report Type: Spontaneous
  Country: FR (occurrence: FR)
  Receive Date: 20131106
  Receipt Date: 20131106
  Transmission Date: 20140711
  Serious: Yes (Hospitalization)
  Sender: FDA-Public Use
  Company Number: FR-SA-2013SA110455

PATIENT
  Age: 56 Year
  Sex: Male

DRUGS (4)
  1. RIFADINE [Suspect]
     Indication: SKIN ULCER
     Route: 042
     Dates: start: 20130820, end: 20130917
  2. CUBICIN [Suspect]
     Indication: SKIN ULCER
     Route: 042
     Dates: start: 20130820, end: 20130917
  3. TAZOCILLINE [Suspect]
     Indication: SKIN ULCER
     Route: 042
     Dates: start: 20130820, end: 20130917
  4. AUGMENTIN [Concomitant]
     Route: 042
     Dates: end: 20130820

REACTIONS (4)
  - Pneumonia [Recovered/Resolved]
  - Productive cough [Recovered/Resolved]
  - Pyrexia [Recovered/Resolved]
  - C-reactive protein increased [Recovered/Resolved]
